FAERS Safety Report 5749968-1 (Version None)
Quarter: 2008Q2

REPORT INFORMATION
  Report Type: 
  Country: None (occurrence: None)
  Receive Date: 20080527
  Receipt Date: 20080519
  Transmission Date: 20081010
  Serious: Yes (Hospitalization)
  Sender: FDA-Public Use
  Company Number: FR-ASTRAZENECA-2008CG00730

PATIENT
  Age: 80 Year
  Sex: Female

DRUGS (4)
  1. TENORMIN [Suspect]
     Indication: HYPERTENSION
     Route: 048
     Dates: end: 20071103
  2. ASPIRIN [Concomitant]
     Route: 065
  3. ARICEPT [Concomitant]
     Route: 065
  4. TAREG [Concomitant]
     Indication: HYPERTENSION
     Route: 065

REACTIONS (4)
  - BLOOD PRESSURE SYSTOLIC INCREASED [None]
  - DIZZINESS [None]
  - PRESYNCOPE [None]
  - SINUS BRADYCARDIA [None]
